FAERS Safety Report 18278090 (Version 2)
Quarter: 2021Q2

REPORT INFORMATION
  Report Type: Spontaneous
  Country: IN (occurrence: IN)
  Receive Date: 20200917
  Receipt Date: 20210504
  Transmission Date: 20210717
  Serious: Yes (Other)
  Sender: FDA-Public Use
  Company Number: IN-PFIZER INC-2020346618

PATIENT
  Age: 54 Year
  Sex: Male
  Weight: 47.4 kg

DRUGS (2)
  1. DACOPLICE [Suspect]
     Active Substance: DACOMITINIB
     Dosage: 30 MG, 1X/DAY
     Route: 048
  2. DACOPLICE [Suspect]
     Active Substance: DACOMITINIB
     Dosage: 15 MG, 1X/DAY
     Route: 048
     Dates: start: 20210421

REACTIONS (3)
  - Rash [Unknown]
  - Blood pressure increased [Unknown]
  - Heart rate increased [Unknown]
